FAERS Safety Report 6922861-4 (Version None)
Quarter: 2010Q3

REPORT INFORMATION
  Report Type: 
  Country: None (occurrence: None)
  Receive Date: 20100813
  Receipt Date: 20100811
  Transmission Date: 20110219
  Serious: Yes (Hospitalization)
  Sender: FDA-Public Use
  Company Number: JP-BRISTOL-MYERS SQUIBB COMPANY-15235435

PATIENT
  Age: 42 Year
  Weight: 41 kg

DRUGS (7)
  1. CISPLATIN [Suspect]
     Indication: CERVIX CARCINOMA RECURRENT
     Dosage: 64MG CYCLE4 FROM 11JUN10,CYCLE 5 FROM 08JUL10
     Route: 042
     Dates: start: 20100325, end: 20100802
  2. S-1 [Suspect]
     Indication: CERVIX CARCINOMA RECURRENT
     Dosage: CYCLE1 FROM 25MAR-08APR10,CYCLE4 FROM 11JUN-25JUN10
     Route: 048
     Dates: start: 20100325, end: 20100802
  3. LOXONIN [Concomitant]
     Indication: PAIN
     Dosage: ALSO  AS NECESSARY EXTERNAL USE FROM 07JUN10 FOR PAIN
     Route: 048
     Dates: start: 20100311, end: 20100728
  4. RABEPRAZOLE SODIUM [Concomitant]
     Indication: GASTRITIS PROPHYLAXIS
     Route: 048
     Dates: start: 20100311
  5. PURSENNID [Concomitant]
     Indication: CONSTIPATION
     Route: 048
     Dates: start: 20100416
  6. WARFARIN [Concomitant]
     Indication: THROMBOSIS
     Dosage: 1DF=0.5 OR 1MG
     Route: 048
     Dates: start: 20100701, end: 20100720
  7. CALONAL [Concomitant]
     Indication: PAIN
     Route: 048
     Dates: start: 20100729

REACTIONS (2)
  - HYDRONEPHROSIS [None]
  - RENAL FAILURE ACUTE [None]
